FAERS Safety Report 10029955 (Version 2)
Quarter: 2014Q1

REPORT INFORMATION
  Report Type: Spontaneous
  Country: US (occurrence: US)
  Receive Date: 20140323
  Receipt Date: 20140323
  Transmission Date: 20141002
  Serious: No
  Sender: FDA-Public Use
  Company Number: US-ALLERGAN-1305922US

PATIENT
  Age: 70 Year
  Sex: Female

DRUGS (5)
  1. LATISSE 0.03% [Suspect]
     Indication: GROWTH OF EYELASHES
     Dosage: 2 GTT, QHS
     Route: 061
  2. LATISSE 0.03% [Suspect]
     Dosage: 1 GTT, QPM
     Route: 061
  3. HYZAAR                             /01284801/ [Concomitant]
     Indication: HYPERTENSION
     Dosage: 12.5 MG, QD
     Route: 048
  4. EVISTA                             /01303201/ [Concomitant]
     Indication: OSTEOPOROSIS
     Dosage: 60 MG, QD
     Route: 048
  5. MOBIC [Concomitant]
     Indication: ARTHRITIS
     Dosage: 15 MG, PRN
     Route: 048

REACTIONS (2)
  - Incorrect dose administered [Unknown]
  - Madarosis [Not Recovered/Not Resolved]
